FAERS Safety Report 12474370 (Version 1)
Quarter: 2016Q2

REPORT INFORMATION
  Report Type: Spontaneous
  Country: US (occurrence: None)
  Receive Date: 20160616
  Receipt Date: 20160616
  Transmission Date: 20160815
  Serious: Yes (Other)
  Sender: FDA-Public Use
  Company Number: None

PATIENT
  Age: 52 Year
  Sex: Female
  Weight: 52.16 kg

DRUGS (5)
  1. METAMUCIL [Concomitant]
     Active Substance: PLANTAGO SEED
  2. NORETHINDRONE TABLETS USP [Concomitant]
     Active Substance: NORETHINDRONE
  3. MOMETASONE FUROATE 0.1% CREAM, 0.1 % GLENMARK PHARMACEUTICALS [Suspect]
     Active Substance: MOMETASONE FUROATE
     Indication: DERMATITIS CONTACT
     Dosage: 15 GRAMS, ONCE A DAY, APPLIED TO A SURFACE, USUALLY THE SKIN
     Route: 061
     Dates: start: 20160615, end: 20160615
  4. MULTI VITAMIN - NO IRON [Concomitant]
  5. PROBIOTIC [Concomitant]
     Active Substance: PROBIOTICS NOS

REACTIONS (2)
  - Burning sensation [None]
  - Dermatitis [None]

NARRATIVE: CASE EVENT DATE: 20160615
